FAERS Safety Report 14915599 (Version 2)
Quarter: 2018Q2

REPORT INFORMATION
  Report Type: Spontaneous
  Country: LB (occurrence: LB)
  Receive Date: 20180518
  Receipt Date: 20180531
  Transmission Date: 20180711
  Serious: Yes (Hospitalization, Other)
  Sender: FDA-Public Use
  Company Number: LB-NOVOPROD-599632

PATIENT
  Age: 23 Year
  Sex: Female
  Weight: 66 kg

DRUGS (1)
  1. SAXENDA [Suspect]
     Active Substance: LIRAGLUTIDE
     Indication: WEIGHT CONTROL
     Dosage: 0.6 MG (ONLY ONE INJECTION WAS PERFORMED)
     Route: 058

REACTIONS (1)
  - Anxiety disorder [Recovered/Resolved]
